FAERS Safety Report 13985482 (Version 20)
Quarter: 2025Q4

REPORT INFORMATION
  Report Type: Report from Study
  Country: CA (occurrence: CA)
  Receive Date: 20170919
  Receipt Date: 20251224
  Transmission Date: 20260117
  Serious: Yes (Hospitalization, Other)
  Sender: ROCHE
  Company Number: CA-002147023-PHHY2017CA001263

PATIENT
  Age: 47 Year
  Sex: Female
  Weight: 41.00 kg

DRUGS (22)
  1. XOLAIR [Suspect]
     Active Substance: OMALIZUMAB
     Indication: Asthma
     Route: 058
     Dates: start: 20110120
  2. XOLAIR [Suspect]
     Active Substance: OMALIZUMAB
     Route: 058
     Dates: start: 20170126
  3. XOLAIR [Suspect]
     Active Substance: OMALIZUMAB
     Route: 058
  4. XOLAIR [Suspect]
     Active Substance: OMALIZUMAB
     Route: 058
     Dates: start: 20171222
  5. XOLAIR [Suspect]
     Active Substance: OMALIZUMAB
     Route: 058
  6. XOLAIR [Suspect]
     Active Substance: OMALIZUMAB
     Route: 058
     Dates: start: 20181130
  7. XOLAIR [Suspect]
     Active Substance: OMALIZUMAB
     Route: 058
     Dates: start: 20181217
  8. XOLAIR [Suspect]
     Active Substance: OMALIZUMAB
     Route: 058
     Dates: start: 20190906
  9. XOLAIR [Suspect]
     Active Substance: OMALIZUMAB
     Route: 058
     Dates: start: 20191129
  10. XOLAIR [Suspect]
     Active Substance: OMALIZUMAB
     Route: 058
     Dates: start: 20200221
  11. XOLAIR [Suspect]
     Active Substance: OMALIZUMAB
     Route: 058
  12. XOLAIR [Suspect]
     Active Substance: OMALIZUMAB
     Route: 058
     Dates: start: 20150130
  13. XOLAIR [Suspect]
     Active Substance: OMALIZUMAB
     Route: 058
  14. XOLAIR [Suspect]
     Active Substance: OMALIZUMAB
     Route: 058
  15. XOLAIR [Suspect]
     Active Substance: OMALIZUMAB
     Route: 058
  16. XOLAIR [Suspect]
     Active Substance: OMALIZUMAB
     Route: 058
  17. XOLAIR [Suspect]
     Active Substance: OMALIZUMAB
     Route: 058
     Dates: start: 20181005
  18. XOLAIR [Suspect]
     Active Substance: OMALIZUMAB
     Route: 058
  19. XOLAIR [Suspect]
     Active Substance: OMALIZUMAB
     Route: 058
     Dates: start: 20231218
  20. XOLAIR [Suspect]
     Active Substance: OMALIZUMAB
     Route: 058
  21. XOLAIR [Suspect]
     Active Substance: OMALIZUMAB
     Route: 058
  22. CORTISONE [Concomitant]
     Active Substance: CORTISONE
     Indication: Product used for unknown indication

REACTIONS (54)
  - Diverticulitis [Unknown]
  - Pain [Unknown]
  - Abdominal pain [Unknown]
  - Respiratory tract infection [Recovering/Resolving]
  - Pulmonary congestion [Unknown]
  - Abscess intestinal [Recovering/Resolving]
  - Haematochezia [Unknown]
  - Body temperature abnormal [Unknown]
  - Influenza [Not Recovered/Not Resolved]
  - Headache [Recovering/Resolving]
  - Hyperthermia [Unknown]
  - Nail growth abnormal [Unknown]
  - Hair growth abnormal [Unknown]
  - Thyroid disorder [Unknown]
  - Irritable bowel syndrome [Unknown]
  - Sensitive skin [Unknown]
  - Concomitant disease aggravated [Unknown]
  - General physical health deterioration [Unknown]
  - Rhinorrhoea [Recovering/Resolving]
  - Pyrexia [Recovered/Resolved]
  - Dyspnoea exertional [Unknown]
  - Increased upper airway secretion [Unknown]
  - Increased bronchial secretion [Recovering/Resolving]
  - Sleep disorder [Unknown]
  - Nasal discharge discolouration [Unknown]
  - Productive cough [Not Recovered/Not Resolved]
  - Oropharyngeal pain [Unknown]
  - Bronchial disorder [Unknown]
  - Nasal polyps [Recovering/Resolving]
  - Sensitivity to weather change [Unknown]
  - Weight decreased [Unknown]
  - Nausea [Unknown]
  - Fatigue [Unknown]
  - Nasopharyngitis [Recovering/Resolving]
  - Mobility decreased [Unknown]
  - Diarrhoea [Unknown]
  - Ligament sprain [Unknown]
  - Asthma [Unknown]
  - Discomfort [Unknown]
  - Throat clearing [Unknown]
  - Respiration abnormal [Unknown]
  - Incorrect dose administered [Unknown]
  - Myalgia [Unknown]
  - Cough [Not Recovered/Not Resolved]
  - Dyspnoea [Recovering/Resolving]
  - Nasal congestion [Unknown]
  - Vomiting [Unknown]
  - Sputum discoloured [Not Recovered/Not Resolved]
  - Toothache [Unknown]
  - Pollakiuria [Unknown]
  - Oral discharge [Unknown]
  - Inappropriate schedule of product administration [Unknown]
  - Secretion discharge [Unknown]
  - Asthenia [Unknown]

NARRATIVE: CASE EVENT DATE: 20110120
